FAERS Safety Report 14852223 (Version 1)
Quarter: 2018Q2

REPORT INFORMATION
  Report Type: Spontaneous
  Country: US (occurrence: US)
  Receive Date: 20180507
  Receipt Date: 20180507
  Transmission Date: 20180711
  Serious: No
  Sender: FDA-Public Use
  Company Number: US-PFIZER INC-2018184938

PATIENT
  Age: 48 Year
  Sex: Female
  Weight: 68.27 kg

DRUGS (3)
  1. DOCETAXEL. [Suspect]
     Active Substance: DOCETAXEL
     Dosage: 150 MG, EVERY 3 WEEKS
     Dates: end: 20081226
  2. CARBOPLATIN. [Concomitant]
     Active Substance: CARBOPLATIN
     Dosage: UNK
     Dates: start: 20081114, end: 20081226
  3. DOCETAXEL. [Suspect]
     Active Substance: DOCETAXEL
     Indication: BREAST CANCER
     Dosage: 145 MG, EVERY 3 WEEKS
     Dates: start: 20081114

REACTIONS (5)
  - Hair disorder [Unknown]
  - Madarosis [Unknown]
  - Hair colour changes [Unknown]
  - Hair texture abnormal [Unknown]
  - Alopecia [Unknown]

NARRATIVE: CASE EVENT DATE: 2008
